FAERS Safety Report 7706838-7 (Version None)
Quarter: 2011Q3

REPORT INFORMATION
  Report Type: 
  Country: None (occurrence: None)
  Receive Date: 20110824
  Receipt Date: 20110810
  Transmission Date: 20111222
  Serious: Yes (Death, Hospitalization)
  Sender: FDA-Public Use
  Company Number: US-GLAXOSMITHKLINE-A0817851A

PATIENT
  Age: 55 Year
  Sex: Male
  Weight: 141.4 kg

DRUGS (12)
  1. GEMFIBROZIL [Concomitant]
  2. INSULIN ASPART [Concomitant]
  3. INSULIN GLARGINE [Concomitant]
  4. DICLOFENAC SODIUM [Concomitant]
  5. FUROSEMIDE [Concomitant]
  6. ATORVASTATIN [Concomitant]
  7. ACETAMINOPHEN [Concomitant]
  8. ALBUTEROL SULFATE AND IPRATROPIUM BROMIDE [Concomitant]
  9. RANITIDINE [Concomitant]
  10. AVANDIA [Suspect]
     Indication: DIABETES MELLITUS
     Dosage: 2MG TWICE PER DAY
     Route: 048
     Dates: start: 19990501, end: 20040801
  11. BUPROPION HCL [Concomitant]
  12. NIFEDIPINE [Concomitant]

REACTIONS (4)
  - CORONARY ARTERY DISEASE [None]
  - ATRIAL FIBRILLATION [None]
  - SUDDEN CARDIAC DEATH [None]
  - EMPHYSEMA [None]
